FAERS Safety Report 8319657-8 (Version None)
Quarter: 2012Q2

REPORT INFORMATION
  Report Type: 
  Country: None (occurrence: None)
  Receive Date: 20120427
  Receipt Date: 20120418
  Transmission Date: 20120825
  Serious: Yes (Other)
  Sender: FDA-Public Use
  Company Number: US-ELI_LILLY_AND_COMPANY-US201203008316

PATIENT
  Sex: Female

DRUGS (2)
  1. FORTEO [Suspect]
     Indication: OSTEOPOROSIS
     Dosage: 20 UG, QD
     Route: 058
  2. FORTEO [Suspect]
     Dosage: 20 UG, QD
     Route: 058
     Dates: start: 20111208

REACTIONS (7)
  - ARTHRALGIA [None]
  - HEADACHE [None]
  - HAEMOPTYSIS [None]
  - BONE PAIN [None]
  - JOINT CREPITATION [None]
  - ADVERSE EVENT [None]
  - MUSCLE SPASMS [None]
